FAERS Safety Report 10540657 (Version 1)
Quarter: 2014Q4

REPORT INFORMATION
  Report Type: Spontaneous
  Country: AT (occurrence: AT)
  Receive Date: 20141024
  Receipt Date: 20141024
  Transmission Date: 20150529
  Serious: Yes (Hospitalization, Other)
  Sender: FDA-Public Use
  Company Number: AT-PFIZER INC-2014288393

PATIENT
  Age: 74 Year
  Sex: Male
  Weight: 81.25 kg

DRUGS (56)
  1. RISPERDAL [Concomitant]
     Active Substance: RISPERIDONE
     Dosage: 4 MG, UNK
     Dates: start: 20140109, end: 20140112
  2. ACEMIN [Concomitant]
     Active Substance: LISINOPRIL
     Dosage: 40 MG, UNK
     Dates: start: 20140129, end: 20140203
  3. CONCOR [Concomitant]
     Active Substance: BISOPROLOL FUMARATE
     Dosage: 2.5 MG, UNK
     Dates: start: 20140129, end: 20140212
  4. TEMESTA [Concomitant]
     Active Substance: LORAZEPAM
     Dosage: 3 MG, UNK
     Route: 040
     Dates: start: 20140127, end: 20140130
  5. RIVOTRIL [Concomitant]
     Active Substance: CLONAZEPAM
     Dosage: 2 MG, UNK
     Dates: start: 20140113, end: 20140114
  6. RISPERDAL [Concomitant]
     Active Substance: RISPERIDONE
     Dosage: 4 MG, UNK
     Dates: start: 20140218, end: 20140224
  7. DELPRAL [Concomitant]
     Dosage: 200 MG, UNK
     Dates: start: 20140118, end: 20140118
  8. PANTOLOC ^NYCOMED^ [Concomitant]
     Dosage: 40 MG, UNK
     Dates: start: 20140127, end: 20140204
  9. EFECTIN ER [Suspect]
     Active Substance: VENLAFAXINE HYDROCHLORIDE
     Dosage: 225 MG, UNK
     Dates: start: 20140113
  10. TRITTICO [Suspect]
     Active Substance: TRAZODONE HYDROCHLORIDE
     Dosage: 150 MG, UNK
     Dates: start: 20140131
  11. LEPONEX ^NOVARTIS^ [Suspect]
     Active Substance: CLOZAPINE
     Dosage: 50 MG, UNK
     Dates: start: 20140125
  12. NEURONTIN [Concomitant]
     Active Substance: GABAPENTIN
     Dosage: 1200 MG, UNK
     Dates: start: 20140209, end: 20140227
  13. AMLODIPINE BESILATE [Concomitant]
     Active Substance: AMLODIPINE BESYLATE
     Dosage: 10 G, UNK
     Dates: start: 20140205, end: 20140210
  14. RISPERDAL [Concomitant]
     Active Substance: RISPERIDONE
     Dosage: 2 MG, UNK
     Dates: start: 20140113, end: 20140114
  15. DELPRAL [Concomitant]
     Dosage: 600 MG, UNK
     Dates: start: 2008, end: 20140112
  16. DELPRAL [Concomitant]
     Dosage: 400 MG, UNK
     Dates: start: 20140115, end: 20140115
  17. DELPRAL [Concomitant]
     Dosage: 300 MG, UNK
     Dates: start: 20140116, end: 20140117
  18. ACEMIN [Concomitant]
     Active Substance: LISINOPRIL
     Dosage: 30 MG, UNK
     Dates: start: 20140204, end: 20140204
  19. ACEMIN [Concomitant]
     Active Substance: LISINOPRIL
     Dosage: 20 MG, UNK
     Dates: start: 20140205, end: 20140205
  20. EFECTIN ER [Suspect]
     Active Substance: VENLAFAXINE HYDROCHLORIDE
     Dosage: 300 MG, UNK
     Dates: start: 20140116
  21. TRITTICO [Suspect]
     Active Substance: TRAZODONE HYDROCHLORIDE
     Dosage: 150 MG, UNK
     Dates: start: 2008
  22. TRITTICO [Suspect]
     Active Substance: TRAZODONE HYDROCHLORIDE
     Dosage: 300 MG, UNK
     Dates: start: 20140207
  23. LEPONEX ^NOVARTIS^ [Suspect]
     Active Substance: CLOZAPINE
     Dosage: 100 MG, UNK
     Dates: start: 20140122, end: 20140122
  24. TEMESTA [Concomitant]
     Active Substance: LORAZEPAM
     Dosage: 1 MG, UNK
     Route: 040
     Dates: start: 20140204, end: 20140204
  25. NEURONTIN [Concomitant]
     Active Substance: GABAPENTIN
     Dosage: 600 MG, UNK
     Dates: start: 20140130, end: 20140207
  26. AMLODIPINE BESILATE [Concomitant]
     Active Substance: AMLODIPINE BESYLATE
     Dosage: 5 G, UNK
     Dates: start: 20140203, end: 20140204
  27. RISPERDAL [Concomitant]
     Active Substance: RISPERIDONE
     Dosage: 5 MG, UNK
     Dates: start: 20140225, end: 20140302
  28. LEPONEX ^NOVARTIS^ [Suspect]
     Active Substance: CLOZAPINE
     Dosage: 50 MG, UNK
     Dates: start: 20140114, end: 20140119
  29. TEMESTA [Concomitant]
     Active Substance: LORAZEPAM
     Dosage: 2 MG, UNK
     Route: 040
     Dates: start: 20140125, end: 20140125
  30. NEURONTIN [Concomitant]
     Active Substance: GABAPENTIN
     Dosage: 900 MG, UNK
     Dates: start: 20140208, end: 20140209
  31. RIVOTRIL [Concomitant]
     Active Substance: CLONAZEPAM
     Dosage: 0.5 MG, UNK
     Dates: start: 20140109, end: 20140109
  32. RISPERDAL [Concomitant]
     Active Substance: RISPERIDONE
     Dosage: 2 MG, UNK
     Dates: start: 20140126, end: 20140128
  33. RISPERDAL [Concomitant]
     Active Substance: RISPERIDONE
     Dosage: 3 MG, UNK
     Dates: start: 20140129, end: 20140217
  34. ACECOMB [Concomitant]
     Active Substance: HYDROCHLOROTHIAZIDE\LISINOPRIL
     Dosage: 1 DF, UNK
     Dates: start: 20140129, end: 20140210
  35. TRITTICO [Suspect]
     Active Substance: TRAZODONE HYDROCHLORIDE
     Dosage: 75 MG, UNK
     Dates: start: 20140127
  36. TEMESTA [Concomitant]
     Active Substance: LORAZEPAM
     Dosage: 2 MG, UNK
     Route: 040
     Dates: start: 20140131, end: 20140203
  37. NEURONTIN [Concomitant]
     Active Substance: GABAPENTIN
     Dosage: 300 MG, UNK
     Dates: start: 20140127, end: 20140129
  38. RIVOTRIL [Concomitant]
     Active Substance: CLONAZEPAM
     Dosage: 1 MG, UNK
     Dates: start: 20140115, end: 20140115
  39. DELPRAL [Concomitant]
     Dosage: 100 MG, UNK
     Dates: start: 20140119, end: 20140119
  40. ACEMIN [Concomitant]
     Active Substance: LISINOPRIL
     Dosage: 5 MG, UNK
     Dates: start: 20140127, end: 20140128
  41. ACEMIN [Concomitant]
     Active Substance: LISINOPRIL
     Dosage: 10 MG, UNK
     Dates: start: 20140206, end: 20140210
  42. LEPONEX ^NOVARTIS^ [Suspect]
     Active Substance: CLOZAPINE
     Dosage: 75 MG, UNK
     Dates: start: 20140120, end: 20140121
  43. DELPRAL [Concomitant]
     Dosage: 500 MG, UNK
     Dates: start: 20140113, end: 20140114
  44. PANTOLOC ^NYCOMED^ [Concomitant]
     Dosage: 20 MG, UNK
     Dates: start: 20140205, end: 20140216
  45. ZOLDEM [Concomitant]
     Active Substance: ZOLPIDEM TARTRATE
     Dosage: 10 MG, UNK
     Dates: start: 20140206
  46. EFECTIN ER [Suspect]
     Active Substance: VENLAFAXINE HYDROCHLORIDE
     Dosage: 150 MG, UNK
     Dates: start: 2008
  47. TRITTICO [Suspect]
     Active Substance: TRAZODONE HYDROCHLORIDE
     Dosage: 150 MG, UNK
     Dates: start: 20140224
  48. LEPONEX ^NOVARTIS^ [Suspect]
     Active Substance: CLOZAPINE
     Dosage: 25 MG, UNK
     Dates: start: 20140113, end: 20140113
  49. LEPONEX ^NOVARTIS^ [Suspect]
     Active Substance: CLOZAPINE
     Dosage: 150 MG, UNK
     Dates: start: 20140123, end: 20140123
  50. LEPONEX ^NOVARTIS^ [Suspect]
     Active Substance: CLOZAPINE
     Dosage: 175 MG, UNK
     Dates: start: 20140124, end: 20140124
  51. TRESLEEN [Concomitant]
     Active Substance: SERTRALINE HYDROCHLORIDE
     Dosage: 100 MG, UNK
     Dates: start: 2008, end: 20140112
  52. TEMESTA [Concomitant]
     Active Substance: LORAZEPAM
     Dosage: 8 MG, UNK
     Route: 040
     Dates: start: 20140126, end: 20140126
  53. RIVOTRIL [Concomitant]
     Active Substance: CLONAZEPAM
     Dosage: 0.25 MG, UNK
     Dates: start: 2008, end: 20140108
  54. RIVOTRIL [Concomitant]
     Active Substance: CLONAZEPAM
     Dosage: 1 MG, UNK
     Dates: start: 20140110, end: 20140112
  55. RISPERDAL [Concomitant]
     Active Substance: RISPERIDONE
     Dosage: 6 MG, UNK
     Dates: start: 2008, end: 20140108
  56. RISPERDAL [Concomitant]
     Active Substance: RISPERIDONE
     Dosage: 6 MG, UNK
     Dates: start: 20140303

REACTIONS (6)
  - Positron emission tomogram abnormal [Unknown]
  - Heart rate increased [Recovered/Resolved]
  - Delirium [Recovered/Resolved]
  - Blood pressure increased [Unknown]
  - Chest X-ray abnormal [Unknown]
  - Nuclear magnetic resonance imaging brain abnormal [Unknown]

NARRATIVE: CASE EVENT DATE: 20140109
